FAERS Safety Report 7276728-5 (Version None)
Quarter: 2011Q1

REPORT INFORMATION
  Report Type: 
  Country: None (occurrence: None)
  Receive Date: 20110204
  Receipt Date: 20110126
  Transmission Date: 20110831
  Serious: Yes (Hospitalization)
  Sender: FDA-Public Use
  Company Number: US-ASTRAZENECA-2010SE14662

PATIENT
  Age: 84 Year
  Sex: Female
  Weight: 63.5 kg

DRUGS (4)
  1. LISINOPRIL [Concomitant]
     Indication: HYPERTENSION
     Route: 048
  2. FASLODEX [Suspect]
     Indication: BREAST CANCER
     Route: 030
     Dates: start: 20070801, end: 20101101
  3. ZOMETA [Concomitant]
     Indication: BONE DENSITY ABNORMAL
  4. HYDROCHLOROTHIAZIDE [Concomitant]
     Indication: HYPERTENSION
     Route: 048

REACTIONS (5)
  - CARDIAC PACEMAKER INSERTION [None]
  - ARTHRITIS [None]
  - BONE PAIN [None]
  - OSTEOARTHRITIS [None]
  - MYALGIA [None]
